FAERS Safety Report 18736148 (Version 1)
Quarter: 2021Q1

REPORT INFORMATION
  Report Type: Spontaneous
  Country: DE (occurrence: DE)
  Receive Date: 20210113
  Receipt Date: 20210113
  Transmission Date: 20210419
  Serious: Yes (Life-Threatening, Other)
  Sender: FDA-Public Use
  Company Number: DE-CIRCASSIA PHARMACEUTICALS INC-2021DE000115

PATIENT

DRUGS (1)
  1. DUAKLIR [Suspect]
     Active Substance: ACLIDINIUM BROMIDE\FORMOTEROL FUMARATE
     Indication: CHRONIC OBSTRUCTIVE PULMONARY DISEASE
     Dosage: 340/12 UG
     Route: 055

REACTIONS (1)
  - Lung neoplasm malignant [Unknown]
